FAERS Safety Report 17398279 (Version 2)
Quarter: 2020Q1

REPORT INFORMATION
  Report Type: Spontaneous
  Country: PL (occurrence: PL)
  Receive Date: 20200210
  Receipt Date: 20200309
  Transmission Date: 20200409
  Serious: Yes (Other)
  Sender: FDA-Public Use
  Company Number: PL-SA-2020SA034248

PATIENT
  Age: 62 Year
  Sex: Male

DRUGS (2)
  1. OMNIC OCA [Suspect]
     Active Substance: TAMSULOSIN HYDROCHLORIDE
     Indication: LOWER URINARY TRACT SYMPTOMS
     Dosage: 0.4 MG, QD
     Route: 048
     Dates: start: 20190512, end: 202001
  2. OMNIC OCA [Suspect]
     Active Substance: TAMSULOSIN HYDROCHLORIDE
     Indication: BENIGN PROSTATIC HYPERPLASIA

REACTIONS (8)
  - Platelet count decreased [Recovering/Resolving]
  - Heart rate decreased [Recovering/Resolving]
  - Blood pressure decreased [Recovering/Resolving]
  - Cardiovascular disorder [Recovering/Resolving]
  - Visual impairment [Recovering/Resolving]
  - Mean platelet volume increased [Recovering/Resolving]
  - Peripheral coldness [Recovering/Resolving]
  - Headache [Recovering/Resolving]
